FAERS Safety Report 9636509 (Version 1)
Quarter: 2013Q4

REPORT INFORMATION
  Report Type: Spontaneous
  Country: CH (occurrence: CH)
  Receive Date: 20131021
  Receipt Date: 20131021
  Transmission Date: 20140711
  Serious: Yes (Life-Threatening)
  Sender: FDA-Public Use
  Company Number: PHHY2013CH114024

PATIENT
  Age: 74 Year
  Sex: Female

DRUGS (17)
  1. METFIN [Suspect]
     Indication: TYPE 1 DIABETES MELLITUS
     Dosage: 1 DF, BID
     Route: 048
     Dates: end: 20130910
  2. CO-AMOXI -MEPHA [Concomitant]
     Dosage: 1 DF, BID
     Route: 048
     Dates: start: 201308, end: 20130910
  3. PLAVIX [Concomitant]
     Dosage: 75 MG, QD
     Route: 048
  4. CIPRALEX                                /DEN/ [Concomitant]
     Dosage: 10 MG, QD
     Route: 048
     Dates: end: 201309
  5. LYRICA [Concomitant]
     Dosage: 150 MG, QD
     Route: 048
     Dates: end: 201309
  6. BELOC                              /01739801/ [Concomitant]
     Dosage: 50 MG, QD
     Route: 048
  7. ARICEPT [Concomitant]
     Dosage: 10 MG, QD
     Route: 048
  8. TRANSIPEG//MACROGOL [Concomitant]
     Dosage: 1 DF, BID
     Route: 048
  9. ALENDRON MEPHA [Concomitant]
     Dosage: 70 MG, QW
     Route: 048
     Dates: end: 201309
  10. TARGIN [Concomitant]
     Dosage: 1 DF, QD
     Route: 048
     Dates: end: 201309
  11. CALCIUM ^SANDOZ^ [Concomitant]
     Dosage: 1 DF, BID
     Route: 048
     Dates: end: 201209
  12. LANTUS [Concomitant]
     Dosage: 24 IU, QD
     Route: 058
     Dates: end: 20130910
  13. IMPORTAL [Concomitant]
     Dosage: 10 UG, UNK
     Route: 048
  14. MAGNESIUM DIASPORAL [Concomitant]
     Dosage: 200 MG, QD
     Route: 048
     Dates: end: 201309
  15. MALTOFER [Concomitant]
     Dosage: 20 GTT, BID
     Route: 048
     Dates: end: 201309
  16. ACIDUM FOLICUM [Concomitant]
     Dosage: 5 MG, QD
     Route: 048
     Dates: end: 201309
  17. COVERSUM COMBI [Concomitant]
     Dosage: 1 DF, QD
     Route: 048
     Dates: end: 201309

REACTIONS (9)
  - Renal failure chronic [Recovering/Resolving]
  - Hyperkalaemia [Recovered/Resolved]
  - Hypoglycaemia [Recovered/Resolved]
  - Tachypnoea [Recovered/Resolved]
  - Altered state of consciousness [Recovered/Resolved]
  - Livedo reticularis [Unknown]
  - Lactic acidosis [Recovered/Resolved]
  - Diarrhoea [Recovered/Resolved]
  - Vomiting [Recovered/Resolved]
